FAERS Safety Report 9437261 (Version 1)
Quarter: 2013Q3

REPORT INFORMATION
  Report Type: Report from Study
  Country: AR (occurrence: AR)
  Receive Date: 20130802
  Receipt Date: 20130802
  Transmission Date: 20140515
  Serious: Yes (Hospitalization)
  Sender: FDA-Public Use
  Company Number: PHHY2013AR082362

PATIENT
  Sex: Female

DRUGS (2)
  1. EXFORGE D [Suspect]
     Indication: HYPERTENSION
     Dosage: 1 DF, (160/5/25 MG) DAILY
     Route: 048
  2. EXFORGE D [Suspect]
     Dosage: UNK UKN, (160/5/25 MG)

REACTIONS (1)
  - Glaucoma [Recovering/Resolving]
